FAERS Safety Report 21838999 (Version 1)
Quarter: 2023Q1

REPORT INFORMATION
  Report Type: Spontaneous
  Country: US (occurrence: None)
  Receive Date: 20230108
  Receipt Date: 20230108
  Transmission Date: 20230417
  Serious: Yes (Other)
  Sender: FDA-Public Use
  Company Number: None

PATIENT
  Sex: Male

DRUGS (3)
  1. CYCLOSPORINE MODIFIED [Suspect]
     Active Substance: CYCLOSPORINE
     Indication: Renal transplant
     Route: 048
     Dates: start: 20180214
  2. CYCLOSPORINE [Suspect]
     Active Substance: CYCLOSPORINE
     Route: 048
  3. MYCOPHENOLIC DR TAB [Concomitant]

REACTIONS (1)
  - Viral infection [None]
